FAERS Safety Report 16724119 (Version 1)
Quarter: 2019Q3

REPORT INFORMATION
  Report Type: Spontaneous
  Country: IT (occurrence: IT)
  Receive Date: 20190821
  Receipt Date: 20190821
  Transmission Date: 20191005
  Serious: Yes (Other)
  Sender: FDA-Public Use
  Company Number: IT-AUROBINDO-AUR-APL-2019-054915

PATIENT

DRUGS (6)
  1. ACICLOVIR [Suspect]
     Active Substance: ACYCLOVIR
     Indication: INFECTION PROPHYLAXIS
     Dosage: 400 MILLIGRAM, TOTAL
     Route: 048
  2. BACTRIM [Concomitant]
     Active Substance: SULFAMETHOXAZOLE\TRIMETHOPRIM
     Indication: ANTIBIOTIC PROPHYLAXIS
     Dosage: 1 DOSAGE FORM
     Route: 048
  3. COVERSYL [Concomitant]
     Active Substance: PERINDOPRIL
     Indication: HYPERTENSION
     Dosage: 5 MILLIGRAM
     Route: 048
  4. LEVOXACIN [Concomitant]
     Active Substance: LEVOFLOXACIN
     Indication: INFECTION
     Dosage: 500 MILLIGRAM
     Route: 048
     Dates: start: 20190617
  5. OMEPRAZOLE. [Concomitant]
     Active Substance: OMEPRAZOLE
     Indication: GASTROOESOPHAGEAL REFLUX DISEASE
     Dosage: 40 MILLIGRAM
     Route: 048
  6. ZARZIO [Concomitant]
     Active Substance: FILGRASTIM
     Indication: NEUTROPENIA
     Dosage: 1 DOSAGE FORM
     Route: 058

REACTIONS (1)
  - Chest pain [Recovering/Resolving]

NARRATIVE: CASE EVENT DATE: 20190620
